FAERS Safety Report 6039844-1 (Version None)
Quarter: 2009Q1

REPORT INFORMATION
  Report Type: 
  Country: None (occurrence: None)
  Receive Date: 20090116
  Receipt Date: 20090107
  Transmission Date: 20090719
  Serious: Yes (Other)
  Sender: FDA-Public Use
  Company Number: GB-SOLVAY-00309000156

PATIENT
  Age: 64 Year
  Sex: Male

DRUGS (8)
  1. ASPIRIN [Concomitant]
     Indication: DRUG USE FOR UNKNOWN INDICATION
     Dosage: DAILY DOSE:  UNKNOWN
     Route: 048
  2. TESTOSTERONE [Suspect]
     Indication: ANXIETY
     Dosage: DAILY DOSE:  UNKNOWN
     Route: 062
     Dates: start: 20080910, end: 20080101
  3. ATENOLOL [Concomitant]
     Indication: DRUG USE FOR UNKNOWN INDICATION
     Dosage: DAILY DOSE:  UNKNOWN
     Route: 048
  4. ACETAMINOPHEN W/ CODEINE [Concomitant]
     Indication: BACK PAIN
     Dosage: DAILY DOSE:  UNKNOWN
     Route: 048
  5. FLUOXETINE [Concomitant]
     Indication: EPILEPSY
     Dosage: DAILY DOSE:  UNKNOWN
     Route: 048
  6. NITROGLYCERIN [Concomitant]
     Indication: DRUG USE FOR UNKNOWN INDICATION
     Dosage: DAILY DOSE:  UNKNOWN
     Route: 065
  7. SIMVASTATIN [Concomitant]
     Indication: DRUG USE FOR UNKNOWN INDICATION
     Dosage: DAILY DOSE:  UNKNOWN
     Route: 048
  8. TEGRETOL [Concomitant]
     Indication: DRUG USE FOR UNKNOWN INDICATION
     Dosage: DAILY DOSE: 400 MILLIGRAM(S)
     Route: 048

REACTIONS (1)
  - ANGINA PECTORIS [None]
